FAERS Safety Report 4697845-X (Version None)
Quarter: 2005Q2

REPORT INFORMATION
  Report Type: 
  Country: None (occurrence: None)
  Receive Date: 20050621
  Receipt Date: 20050603
  Transmission Date: 20051028
  Serious: Yes (Death)
  Sender: FDA-Public Use
  Company Number: DE_050616079

PATIENT
  Age: 84 Year
  Sex: Female

DRUGS (4)
  1. YENTREVE (DULOXETINE HYDROCHLORIDE) [Suspect]
     Indication: STRESS INCONTINENCE
     Dosage: 20 MG DAY
     Dates: start: 20050201
  2. AMLODIPINE [Concomitant]
  3. ASPIRIN [Concomitant]
  4. DIGITOXIN TAB [Concomitant]

REACTIONS (1)
  - DEATH [None]
